FAERS Safety Report 5435755-0 (Version None)
Quarter: 2007Q3

REPORT INFORMATION
  Report Type: 
  Country: None (occurrence: None)
  Receive Date: 20070831
  Receipt Date: 20070820
  Transmission Date: 20080115
  Serious: No
  Sender: FDA-Public Use
  Company Number: A0671584A

PATIENT

DRUGS (1)
  1. ALLI [Suspect]
     Dates: start: 20070626

REACTIONS (4)
  - ANOREXIA [None]
  - DEHYDRATION [None]
  - ENERGY INCREASED [None]
  - THIRST [None]
